FAERS Safety Report 9973806 (Version 1)
Quarter: 2014Q1

REPORT INFORMATION
  Report Type: Spontaneous
  Country: US (occurrence: US)
  Receive Date: 20140306
  Receipt Date: 20140306
  Transmission Date: 20141002
  Serious: Yes (Hospitalization)
  Sender: FDA-Public Use
  Company Number: US-CELGENEUS-163-POMAL-14024083

PATIENT
  Age: 69 Year
  Sex: Male

DRUGS (3)
  1. POMALYST [Suspect]
     Indication: PLASMA CELL MYELOMA
     Dosage: 4 MILLIGRAM
     Route: 048
     Dates: start: 20140204
  2. BLOOD [Concomitant]
     Indication: ANAEMIA
     Dosage: 2 UNITS
     Route: 041
     Dates: start: 201402, end: 201402
  3. PLATELETS [Concomitant]
     Indication: PLATELET COUNT DECREASED
     Route: 041
     Dates: start: 201402, end: 201402

REACTIONS (7)
  - Blood magnesium decreased [Not Recovered/Not Resolved]
  - Blood electrolytes decreased [Not Recovered/Not Resolved]
  - Drug intolerance [Not Recovered/Not Resolved]
  - Asthenia [Not Recovered/Not Resolved]
  - Anaemia [Not Recovered/Not Resolved]
  - Platelet count decreased [Not Recovered/Not Resolved]
  - Dyspnoea [Not Recovered/Not Resolved]
